FAERS Safety Report 5495008-1 (Version None)
Quarter: 2007Q4

REPORT INFORMATION
  Report Type: 
  Country: None (occurrence: None)
  Receive Date: 20071024
  Receipt Date: 20071010
  Transmission Date: 20080405
  Serious: Yes (Death)
  Sender: FDA-Public Use
  Company Number: CA-SHR-CAN-2002-000629

PATIENT
  Age: 60 Year
  Sex: Male

DRUGS (7)
  1. BETASERON [Suspect]
     Indication: MULTIPLE SCLEROSIS
     Dosage: 8 MIU, EVERY 2D
     Route: 058
     Dates: start: 20020415, end: 20020709
  2. INSULIN [Concomitant]
     Dosage: 50 UNK, 1X/DAY
     Route: 058
  3. VIOXX [Concomitant]
  4. DIAZEPAM [Concomitant]
  5. GABAPENTIN [Concomitant]
  6. ADVIL LIQUI-GELS [Concomitant]
     Dosage: UNK, AS REQ'D
  7. TYLENOL W/ CODEINE NO. 3 [Concomitant]
     Dosage: UNK, AS REQ'D

REACTIONS (5)
  - FALL [None]
  - JOINT DISLOCATION [None]
  - LOWER LIMB FRACTURE [None]
  - PATHOLOGICAL FRACTURE [None]
  - PULMONARY EMBOLISM [None]
